FAERS Safety Report 6763565-0 (Version None)
Quarter: 2010Q2

REPORT INFORMATION
  Report Type: 
  Country: None (occurrence: None)
  Receive Date: 20100610
  Receipt Date: 20100601
  Transmission Date: 20101027
  Serious: Yes (Hospitalization)
  Sender: FDA-Public Use
  Company Number: PHHO2008DK10379

PATIENT
  Sex: Female
  Weight: 77 kg

DRUGS (4)
  1. ALISKIREN ALI+TAB [Suspect]
     Indication: ACUTE MYOCARDIAL INFARCTION
     Dosage: 150MG
     Route: 048
     Dates: start: 20080617, end: 20080629
  2. ALISKIREN ALI+TAB [Suspect]
     Dosage: 300MG
     Route: 048
     Dates: start: 20080630, end: 20080704
  3. CARVEDILOL [Concomitant]
  4. DIURETICS [Concomitant]

REACTIONS (2)
  - ANGINA PECTORIS [None]
  - HYPOTENSION [None]
